FAERS Safety Report 25675677 (Version 1)
Quarter: 2025Q3

REPORT INFORMATION
  Report Type: Spontaneous
  Country: US (occurrence: None)
  Receive Date: 20250812
  Receipt Date: 20250812
  Transmission Date: 20251020
  Serious: Yes (Other)
  Sender: FDA-CTU
  Company Number: None

PATIENT
  Age: 79 Year
  Sex: Male
  Weight: 99.79 kg

DRUGS (15)
  1. DILTIAZEM [Suspect]
     Active Substance: DILTIAZEM
     Indication: Atrial fibrillation
     Dosage: FREQUENCY : DAILY;?
     Route: 048
     Dates: start: 20250613, end: 20250720
  2. ELIQUIS [Concomitant]
     Active Substance: APIXABAN
  3. JANIVIA [Concomitant]
  4. OLMESARTAN MEDOXOMIL [Concomitant]
     Active Substance: OLMESARTAN MEDOXOMIL
  5. CHOLECALCIFEROL [Concomitant]
     Active Substance: CHOLECALCIFEROL
  6. VITAMIN D3 [Concomitant]
     Active Substance: CHOLECALCIFEROL
  7. CHROMIUM PICOLATE [Concomitant]
  8. CYANOCOBALAMIN [Concomitant]
     Active Substance: CYANOCOBALAMIN
  9. VITAMIN B12 [Concomitant]
     Active Substance: CYANOCOBALAMIN
  10. FOLIC ACID [Concomitant]
     Active Substance: FOLIC ACID
  11. MAGNESIUM GLUCONATE [Concomitant]
     Active Substance: MAGNESIUM GLUCONATE
  12. MULTIVITAMIN ONE A DAY MENS COMPLETE [Concomitant]
  13. NECBERBERINE [Concomitant]
  14. NITROBLYCERIN [Concomitant]
  15. OMEGA THREE FISH OIL [Concomitant]

REACTIONS (6)
  - Diarrhoea [None]
  - Fall [None]
  - Contusion [None]
  - Depression [None]
  - Skin abrasion [None]
  - Dizziness [None]

NARRATIVE: CASE EVENT DATE: 20250715
